FAERS Safety Report 6206997-1 (Version None)
Quarter: 2009Q2

REPORT INFORMATION
  Report Type: 
  Country: None (occurrence: None)
  Receive Date: 20090528
  Receipt Date: 20090519
  Transmission Date: 20091009
  Serious: Yes (Hospitalization, Other)
  Sender: FDA-Public Use
  Company Number: PHHY2009BR19426

PATIENT
  Age: 51 Year
  Sex: Female
  Weight: 74 kg

DRUGS (1)
  1. VOLTAREN [Suspect]
     Indication: BONE PAIN
     Dosage: 50 MG, UNK
     Route: 048
     Dates: start: 20090201

REACTIONS (5)
  - FEELING ABNORMAL [None]
  - GALLBLADDER OPERATION [None]
  - GALLBLADDER PERFORATION [None]
  - INFECTION [None]
  - POST PROCEDURAL COMPLICATION [None]
